FAERS Safety Report 4866223-2 (Version None)
Quarter: 2005Q4

REPORT INFORMATION
  Report Type: 
  Country: None (occurrence: None)
  Receive Date: 20051221
  Receipt Date: 20051213
  Transmission Date: 20060501
  Serious: Yes (Other)
  Sender: FDA-Public Use
  Company Number: S05-USA-05181-01

PATIENT
  Age: 84 Year
  Sex: Female

DRUGS (5)
  1. NAMENDA [Suspect]
     Indication: DEMENTIA ALZHEIMER'S TYPE
     Dates: start: 20040101
  2. REMINYL (GALANTAMINE) [Suspect]
     Indication: DEMENTIA ALZHEIMER'S TYPE
     Dates: start: 20040101
  3. DETROL (TOLTERODINE L-TARTRATE) [Concomitant]
  4. FOSAMAX [Concomitant]
  5. VITAMINS [Concomitant]

REACTIONS (5)
  - CONDITION AGGRAVATED [None]
  - DEMENTIA ALZHEIMER'S TYPE [None]
  - DISEASE PROGRESSION [None]
  - DRUG INEFFECTIVE [None]
  - URINARY INCONTINENCE [None]
